FAERS Safety Report 9502427 (Version 2)
Quarter: 2013Q3

REPORT INFORMATION
  Report Type: Spontaneous
  Country: IE (occurrence: IE)
  Receive Date: 20130906
  Receipt Date: 20130921
  Transmission Date: 20140515
  Serious: No
  Sender: FDA-Public Use
  Company Number: IE-ROCHE-1270284

PATIENT
  Sex: Female
  Weight: 33.14 kg

DRUGS (2)
  1. ROACCUTANE [Suspect]
     Indication: ACNE
     Route: 048
     Dates: start: 20130328, end: 20130427
  2. ROACCUTANE [Suspect]
     Route: 065
     Dates: start: 2010

REACTIONS (1)
  - Pregnancy [Unknown]
